FAERS Safety Report 9591385 (Version 1)
Quarter: 2013Q4

REPORT INFORMATION
  Report Type: Spontaneous
  Country: US (occurrence: US)
  Receive Date: 20131003
  Receipt Date: 20131003
  Transmission Date: 20140711
  Serious: No
  Sender: FDA-Public Use
  Company Number: US-AMGEN-USASP2012080281

PATIENT
  Sex: 0
  Weight: 84.81 kg

DRUGS (3)
  1. ENBREL [Suspect]
     Indication: PSORIASIS
     Dosage: 50 MG, 2 TIMES/WK
     Route: 058
     Dates: start: 200910
  2. BYSTOLIC [Concomitant]
     Dosage: UNK
  3. EDARBYCLOR [Concomitant]
     Dosage: UNK

REACTIONS (2)
  - Influenza [Recovered/Resolved]
  - Sinusitis [Recovered/Resolved]
